FAERS Safety Report 7020955-9 (Version None)
Quarter: 2010Q3

REPORT INFORMATION
  Report Type: 
  Country: None (occurrence: None)
  Receive Date: 20100929
  Receipt Date: 20091019
  Transmission Date: 20110219
  Serious: No
  Sender: FDA-Public Use
  Company Number: A0812394A

PATIENT
  Age: 54 Year
  Sex: Female

DRUGS (4)
  1. RELENZA [Suspect]
     Indication: H1N1 INFLUENZA
     Dosage: 1PUFF TWICE PER DAY
     Route: 055
     Dates: start: 20091015
  2. TAMIFLU [Suspect]
     Dates: start: 20091012, end: 20091014
  3. ADVIL LIQUI-GELS [Concomitant]
  4. TYLENOL [Concomitant]

REACTIONS (5)
  - DRUG ADMINISTRATION ERROR [None]
  - FATIGUE [None]
  - HEADACHE [None]
  - NIGHT SWEATS [None]
  - PYREXIA [None]
